FAERS Safety Report 8559253-0 (Version None)
Quarter: 2012Q3

REPORT INFORMATION
  Report Type: 
  Country: None (occurrence: None)
  Receive Date: 20120720
  Receipt Date: 20120706
  Transmission Date: 20120928
  Serious: Yes (Life-Threatening, Hospitalization)
  Sender: FDA-Public Use
  Company Number: 2012CP000080

PATIENT
  Age: 30 Year
  Sex: Female

DRUGS (1)
  1. ACETAMINOPHEN [Suspect]
     Dosage: ; IV
     Route: 042
     Dates: start: 20110701

REACTIONS (1)
  - ANAPHYLACTIC SHOCK [None]
